FAERS Safety Report 5648519-X (Version None)
Quarter: 2008Q1

REPORT INFORMATION
  Report Type: 
  Country: None (occurrence: None)
  Receive Date: 20080131
  Receipt Date: 20071017
  Transmission Date: 20080703
  Serious: No
  Sender: FDA-Public Use
  Company Number: 2005PV000827

PATIENT
  Age: 58 Year
  Sex: Male
  Weight: 104.3 kg

DRUGS (10)
  1. EXENATIDE (EXENATIDE) PEN, DISPOSABLE [Suspect]
     Indication: TYPE 2 DIABETES MELLITUS
     Dosage: 10 UG, 2/D, SUBCUTANEOUS; 5 UG, 2/D, SUBCUTANEOUS
     Route: 058
     Dates: start: 20050726, end: 20050801
  2. EXENATIDE (EXENATIDE) PEN, DISPOSABLE [Suspect]
     Indication: TYPE 2 DIABETES MELLITUS
     Dosage: 10 UG, 2/D, SUBCUTANEOUS; 5 UG, 2/D, SUBCUTANEOUS
     Route: 058
     Dates: start: 20050801
  3. NOVOLOG [Concomitant]
  4. NOVOLIN N [Concomitant]
  5. GLUCOVANCE [Concomitant]
  6. LOPID [Concomitant]
  7. DIOVAN (HYDROCHLORIDE, VALSARTAN) [Concomitant]
  8. HUMALOG [Concomitant]
  9. NOVOLOG [Concomitant]
  10. EXENATIDE (EXENATIDE) [Concomitant]

REACTIONS (4)
  - BLOOD GLUCOSE INCREASED [None]
  - DECREASED APPETITE [None]
  - DRUG INEFFECTIVE [None]
  - WEIGHT DECREASED [None]
